FAERS Safety Report 12155047 (Version 1)
Quarter: 2016Q1

REPORT INFORMATION
  Report Type: Spontaneous
  Country: AR (occurrence: AR)
  Receive Date: 20160307
  Receipt Date: 20160307
  Transmission Date: 20160526
  Serious: Yes (Hospitalization, Other)
  Sender: FDA-Public Use
  Company Number: AR-GLAXOSMITHKLINE-AR2016GSK032460

PATIENT
  Age: 50 Year
  Sex: Male

DRUGS (1)
  1. RELVAR ELLIPTA [Suspect]
     Active Substance: FLUTICASONE FUROATE\VILANTEROL TRIFENATATE
     Indication: BRONCHITIS
     Dosage: 1 DF, QD

REACTIONS (6)
  - Cholecystitis [Unknown]
  - Abdominal discomfort [Unknown]
  - Pyrexia [Unknown]
  - Liver abscess [Unknown]
  - Off label use [Unknown]
  - Hepatic pain [Unknown]
